FAERS Safety Report 9863439 (Version 1)
Quarter: 2014Q1

REPORT INFORMATION
  Report Type: Spontaneous
  Country: FR (occurrence: FR)
  Receive Date: 20140203
  Receipt Date: 20140203
  Transmission Date: 20141002
  Serious: Yes (Hospitalization)
  Sender: FDA-Public Use
  Company Number: PHHY2014FR010518

PATIENT
  Age: 67 Year
  Sex: Male

DRUGS (7)
  1. TEGRETOL [Suspect]
     Indication: FACIAL NEURALGIA
     Dosage: 1 DF, BID (1 TABLET IN THE MORNING AND 1 IN THE EVENING)
     Route: 048
     Dates: start: 201212
  2. TEGRETOL [Suspect]
     Dosage: 2 DF, BID (2 TABLETS IN THE MORNING AND 2 IN THE EVENING)
     Route: 048
     Dates: start: 20130927
  3. TEGRETOL [Suspect]
     Dosage: 1 DF, BID
     Route: 048
     Dates: start: 20130929
  4. TAREG [Suspect]
     Indication: HYPERTENSION
     Dosage: 1 DF, QD (IN THE MORNING)
     Route: 048
     Dates: end: 20130929
  5. SPIRIVA [Concomitant]
     Dosage: UNK
  6. SINGULAIR [Concomitant]
     Dosage: UNK
  7. BILASKA [Concomitant]
     Dosage: UNK

REACTIONS (2)
  - Balance disorder [Recovered/Resolved]
  - Fall [Recovered/Resolved]
